FAERS Safety Report 10500966 (Version 1)
Quarter: 2014Q4

REPORT INFORMATION
  Report Type: Spontaneous
  Country: US (occurrence: None)
  Receive Date: 20141003
  Receipt Date: 20141003
  Transmission Date: 20150528
  Serious: Yes (Other)
  Sender: FDA-Public Use
  Company Number: None

PATIENT
  Age: 42 Year
  Sex: Male
  Weight: 114.76 kg

DRUGS (1)
  1. CUBICIN [Suspect]
     Active Substance: DAPTOMYCIN
     Indication: OSTEOMYELITIS
     Dates: start: 20131218, end: 20140109

REACTIONS (9)
  - Chest pain [None]
  - Syncope [None]
  - Product quality issue [None]
  - Hyperhidrosis [None]
  - Foreign body reaction [None]
  - Poor quality drug administered [None]
  - Musculoskeletal chest pain [None]
  - Feeling abnormal [None]
  - Product contamination physical [None]

NARRATIVE: CASE EVENT DATE: 20131231
